FAERS Safety Report 5735770-3 (Version None)
Quarter: 2008Q2

REPORT INFORMATION
  Report Type: 
  Country: None (occurrence: None)
  Receive Date: 20080513
  Receipt Date: 20080501
  Transmission Date: 20081010
  Serious: Yes (Other)
  Sender: FDA-Public Use
  Company Number: US-JNJFOC-20080500670

PATIENT
  Sex: Male
  Weight: 88.45 kg

DRUGS (4)
  1. TOPAMAX [Suspect]
     Indication: MIGRAINE PROPHYLAXIS
     Route: 048
  2. OPANA ER [Suspect]
     Route: 048
  3. OPANA ER [Suspect]
     Indication: NECK PAIN
     Route: 048
  4. LEXAPRO [Concomitant]
     Indication: OBSESSIVE-COMPULSIVE DISORDER
     Route: 048

REACTIONS (6)
  - DIZZINESS [None]
  - EJACULATION FAILURE [None]
  - EUPHORIC MOOD [None]
  - HYPOVENTILATION [None]
  - OVERDOSE [None]
  - THROAT IRRITATION [None]
